FAERS Safety Report 9173772 (Version 2)
Quarter: 2013Q2

REPORT INFORMATION
  Report Type: Spontaneous
  Country: JP (occurrence: JP)
  Receive Date: 20130320
  Receipt Date: 20130617
  Transmission Date: 20140414
  Serious: Yes (Hospitalization, Other)
  Sender: FDA-Public Use
  Company Number: JP-RANBAXY-2013RR-66274

PATIENT
  Age: 19 Year
  Sex: Female
  Weight: 47 kg

DRUGS (9)
  1. IBUPROFEN [Suspect]
     Indication: NASOPHARYNGITIS
     Dosage: UNK
     Route: 065
     Dates: start: 200802
  2. PARACETAMOL [Suspect]
     Indication: NASOPHARYNGITIS
     Dosage: UNK
     Route: 065
  3. PARACETAMOL [Suspect]
     Indication: NASOPHARYNGITIS
     Dosage: UNK
     Route: 048
  4. PANIPENEM/BETAMIPRON [Suspect]
     Indication: PNEUMONIA
     Dosage: 1.5 G/DAY
     Route: 065
  5. ARBEKACIN [Suspect]
     Indication: PNEUMONIA
     Dosage: 300 MG/DAY
     Route: 065
  6. CEFEPIME [Suspect]
     Indication: PNEUMONIA
     Dosage: 2 G/DAY
     Route: 065
  7. MINOCYCLINE [Suspect]
     Indication: PNEUMONIA
     Dosage: 200 MG/DAY
     Route: 065
  8. PREDNISOLONE [Suspect]
     Indication: TOXIC EPIDERMAL NECROLYSIS
     Dosage: 1 MG/KG, UNK
     Route: 065
  9. PREDNISOLONE [Suspect]
     Indication: TOXIC EPIDERMAL NECROLYSIS
     Dosage: UNK
     Route: 065

REACTIONS (2)
  - Toxic epidermal necrolysis [Recovering/Resolving]
  - Vanishing bile duct syndrome [Recovering/Resolving]
